FAERS Safety Report 4490401-8 (Version None)
Quarter: 2004Q4

REPORT INFORMATION
  Report Type: 
  Country: None (occurrence: None)
  Receive Date: 20041028
  Receipt Date: 20041014
  Transmission Date: 20050328
  Serious: Yes (Hospitalization)
  Sender: FDA-Public Use
  Company Number: DE-2004-031549

PATIENT
  Age: 41 Year
  Sex: Female

DRUGS (4)
  1. BETAFERON [Suspect]
     Indication: MULTIPLE SCLEROSIS
     Dosage: 250 UG/DAY, SUBCUTANEOUS : 1 DOSE
     Route: 058
     Dates: start: 20040801, end: 20040816
  2. BETAFERON [Suspect]
     Indication: MULTIPLE SCLEROSIS
     Dosage: 250 UG/DAY, SUBCUTANEOUS : 1 DOSE
     Route: 058
     Dates: start: 20040901, end: 20040901
  3. VITAMINS NOS [Concomitant]
  4. SELENIUM TRACE METAL ADDITIVE [Concomitant]

REACTIONS (5)
  - ERYTHEMA [None]
  - INJECTION SITE DISCOLOURATION [None]
  - INJECTION SITE INDURATION [None]
  - INJECTION SITE INFLAMMATION [None]
  - PRURITUS [None]
